FAERS Safety Report 8965928 (Version 1)
Quarter: 2012Q4

REPORT INFORMATION
  Report Type: 
  Country: US (occurrence: US)
  Receive Date: 20121217
  Receipt Date: 20121217
  Transmission Date: 20130627
  Serious: No
  Sender: FDA-Public Use
  Company Number: US-ABBOTT-12P-163-0992505-00

PATIENT
  Sex: Female
  Weight: 85.81 kg

DRUGS (2)
  1. TRILIPIX [Suspect]
     Indication: BLOOD CHOLESTEROL INCREASED
     Dates: start: 201206
  2. CYMBALTA [Concomitant]
     Indication: DEPRESSION

REACTIONS (1)
  - Fatigue [Not Recovered/Not Resolved]
